FAERS Safety Report 17016107 (Version 2)
Quarter: 2019Q4

REPORT INFORMATION
  Report Type: Report from Study
  Country: CL (occurrence: CL)
  Receive Date: 20191111
  Receipt Date: 20191126
  Transmission Date: 20200122
  Serious: Yes (Other)
  Sender: FDA-Public Use
  Company Number: PHHY2018CL189129

PATIENT
  Age: 27 Year
  Sex: Female

DRUGS (1)
  1. GILENYA [Suspect]
     Active Substance: FINGOLIMOD HYDROCHLORIDE
     Indication: MULTIPLE SCLEROSIS
     Dosage: UNK, QD
     Route: 048
     Dates: start: 20160810

REACTIONS (8)
  - Herpes simplex [Recovered/Resolved]
  - Gastric disorder [Recovered/Resolved]
  - Bipolar disorder [Recovering/Resolving]
  - Palpitations [Recovering/Resolving]
  - Hypomania [Unknown]
  - Bruxism [Unknown]
  - Tremor [Unknown]
  - Ovarian cyst [Unknown]

NARRATIVE: CASE EVENT DATE: 20180626
